FAERS Safety Report 5249127-5 (Version None)
Quarter: 2007Q1

REPORT INFORMATION
  Report Type: 
  Country: None (occurrence: None)
  Receive Date: 20070223
  Receipt Date: 20070208
  Transmission Date: 20070707
  Serious: Yes (Other)
  Sender: FDA-Public Use
  Company Number: 2007RR-05730

PATIENT
  Age: 52 Year
  Sex: Male
  Weight: 65 kg

DRUGS (2)
  1. CIPROFLOXACIN [Suspect]
     Indication: OTITIS MEDIA
     Dosage: 250 MG, BID
     Dates: start: 20061208, end: 20061210
  2. QUININE SULPHATE (QUININE) UNKNOWN [Suspect]
     Indication: MUSCLE SPASMS
     Dosage: 300 MG, QD

REACTIONS (2)
  - CONDITION AGGRAVATED [None]
  - MOTOR NEURONE DISEASE [None]
